FAERS Safety Report 15579299 (Version 1)
Quarter: 2018Q4

REPORT INFORMATION
  Report Type: Spontaneous
  Country: FR (occurrence: FR)
  Receive Date: 20181102
  Receipt Date: 20181102
  Transmission Date: 20190205
  Serious: Yes (Hospitalization)
  Sender: FDA-Public Use
  Company Number: FR-TEVA-2018-FR-971055

PATIENT
  Age: 66 Year
  Sex: Female
  Weight: 71 kg

DRUGS (13)
  1. LEVOFLOXACINE [Suspect]
     Active Substance: LEVOFLOXACIN
     Indication: STERNITIS
     Dosage: 750 MILLIGRAM DAILY; THE MORNING
     Route: 048
     Dates: start: 20180821, end: 20180915
  2. LEVOTHYROX [Concomitant]
     Active Substance: LEVOTHYROXINE
     Indication: THYROIDECTOMY
     Dosage: 175 MICROGRAM DAILY; THE MORNING
     Route: 048
  3. AMLODIPINE [Concomitant]
     Active Substance: AMLODIPINE BESYLATE
     Indication: MYOCARDIAL ISCHAEMIA
     Dosage: 10 MILLIGRAM DAILY; THE MORNING
     Route: 048
  4. EUPRESSYL 30 MG [Concomitant]
     Indication: MYOCARDIAL ISCHAEMIA
     Dosage: 60 MILLIGRAM DAILY; MORNING AND EVENING
     Route: 048
  5. FLUCONAZOLE. [Suspect]
     Active Substance: FLUCONAZOLE
     Indication: ORAL CANDIDIASIS
     Dosage: 100 MILLIGRAM DAILY; THE MORNING
     Route: 048
     Dates: start: 20180821, end: 20180915
  6. GALVUS 50 MG [Suspect]
     Active Substance: VILDAGLIPTIN
     Indication: TYPE 2 DIABETES MELLITUS
     Dosage: 50 MILLIGRAM DAILY; 50 MG IN THE MORNING
     Route: 048
     Dates: start: 20180821
  7. KARDEGIC [Concomitant]
     Active Substance: ASPIRIN DL-LYSINE
     Indication: ARTERIOSCLEROSIS
     Dosage: 75 MILLIGRAM DAILY; 75 MG IN THE MORNING
     Route: 048
  8. BACTRIM [Suspect]
     Active Substance: SULFAMETHOXAZOLE\TRIMETHOPRIM
     Indication: STERNITIS
     Dosage: 2 DOSAGE FORMS DAILY; 800 + 160 MG MORNING AND EVENING
     Route: 048
     Dates: start: 20180821, end: 20180915
  9. TARDYFERON 80 MG [Concomitant]
     Indication: ANAEMIA
     Dosage: 80 MILLIGRAM DAILY; THE MORNING
     Route: 048
  10. CANDESARTAN CILEXETIL. [Suspect]
     Active Substance: CANDESARTAN CILEXETIL
     Indication: MYOCARDIAL ISCHAEMIA
     Dosage: 16 MILLIGRAM DAILY; THE MORNING
     Route: 048
     Dates: start: 201807
  11. PRAVASTATINE SODIQUE [Concomitant]
     Active Substance: PRAVASTATIN SODIUM
     Indication: DYSLIPIDAEMIA
     Dosage: 40 MILLIGRAM DAILY; THE EVENING
     Route: 048
  12. BISOPROLOL (FUMARATE ACIDE DE) [Suspect]
     Active Substance: BISOPROLOL FUMARATE
     Indication: MYOCARDIAL ISCHAEMIA
     Dosage: 1.25 MILLIGRAM DAILY; THE MORNING
     Route: 048
     Dates: start: 201807
  13. PANTOPRAZOLE [Suspect]
     Active Substance: PANTOPRAZOLE
     Indication: PRODUCT USED FOR UNKNOWN INDICATION
     Dosage: 40 MILLIGRAM DAILY; THE EVENING
     Route: 048
     Dates: start: 20180910, end: 20180915

REACTIONS (1)
  - Pancytopenia [Recovered/Resolved]

NARRATIVE: CASE EVENT DATE: 20180914
